FAERS Safety Report 9254156 (Version 3)
Quarter: 2014Q1

REPORT INFORMATION
  Report Type: Report from Study
  Country: CA (occurrence: CA)
  Receive Date: 20130425
  Receipt Date: 20140311
  Transmission Date: 20141002
  Serious: Yes (Life-Threatening, Hospitalization)
  Sender: FDA-Public Use
  Company Number: CA-JNJFOC-20130410515

PATIENT
  Age: 47 Year
  Sex: Male
  Weight: 102.7 kg

DRUGS (11)
  1. REMICADE [Suspect]
     Indication: CROHN^S DISEASE
     Route: 042
     Dates: end: 2014
  2. REMICADE [Suspect]
     Indication: CROHN^S DISEASE
     Dosage: LAST INFUSION
     Route: 042
     Dates: start: 20130319
  3. REMICADE [Suspect]
     Indication: CROHN^S DISEASE
     Dosage: LOADING DOSES
     Route: 042
     Dates: start: 20130305
  4. REMICADE [Suspect]
     Indication: CROHN^S DISEASE
     Dosage: 3RD INFUSION
     Route: 042
     Dates: start: 20130416, end: 20130416
  5. SALOFALK [Concomitant]
     Route: 065
  6. IMURAN [Concomitant]
     Route: 065
  7. LOMOTIL [Concomitant]
     Route: 065
  8. RAMIPRIL [Concomitant]
     Route: 065
  9. CIPRO [Concomitant]
     Route: 065
  10. ZOLOFT [Concomitant]
     Route: 065
  11. PERCOCET [Concomitant]
     Route: 065

REACTIONS (5)
  - Nephrolithiasis [Recovered/Resolved]
  - Infrequent bowel movements [Recovered/Resolved]
  - Rectal abscess [Not Recovered/Not Resolved]
  - Rectal cancer [Not Recovered/Not Resolved]
  - Surgery [Unknown]
